FAERS Safety Report 13443980 (Version 1)
Quarter: 2017Q2

REPORT INFORMATION
  Report Type: Spontaneous
  Country: US (occurrence: US)
  Receive Date: 20170414
  Receipt Date: 20170414
  Transmission Date: 20170830
  Serious: Yes (Other)
  Sender: FDA-Public Use
  Company Number: US-REGENERON PHARMACEUTICALS, INC.-2017-14552

PATIENT

DRUGS (3)
  1. TETRACAINE. [Concomitant]
     Active Substance: TETRACAINE
     Indication: PRODUCT USED FOR UNKNOWN INDICATION
     Dosage: PROCEDURE FOR INJECTION
  2. EYLEA [Suspect]
     Active Substance: AFLIBERCEPT
     Indication: DIABETIC RETINAL OEDEMA
     Dosage: BILATERAL
     Route: 031
  3. POVIDONE-IODINE. [Concomitant]
     Active Substance: POVIDONE-IODINE
     Indication: PRODUCT USED FOR UNKNOWN INDICATION
     Dosage: PROCEDURE FOR INJECTION

REACTIONS (4)
  - Iridocyclitis [Recovered/Resolved]
  - Blindness transient [Recovered/Resolved]
  - Stenotrophomonas infection [Recovered/Resolved]
  - Endophthalmitis [Recovered/Resolved]
